FAERS Safety Report 26205684 (Version 1)
Quarter: 2025Q4

REPORT INFORMATION
  Report Type: Report from Study
  Country: KR (occurrence: KR)
  Receive Date: 20251229
  Receipt Date: 20251229
  Transmission Date: 20260117
  Serious: Yes (Other)
  Sender: NOVARTIS
  Company Number: KR-002147023-NVSC2025KR196236

PATIENT
  Age: 82 Year
  Sex: Female

DRUGS (6)
  1. SCEMBLIX [Suspect]
     Active Substance: ASCIMINIB HYDROCHLORIDE
     Indication: Chronic myeloid leukaemia
     Dosage: 40 MG, BID
     Route: 048
     Dates: start: 20250326
  2. MEQUITAZINE [Concomitant]
     Active Substance: MEQUITAZINE
     Indication: Prophylaxis
     Dosage: 5 MG, BID
     Route: 048
     Dates: start: 20250326
  3. METHYLCOBALAMIN [Concomitant]
     Active Substance: METHYLCOBALAMIN
     Indication: Prophylaxis
     Dosage: 1 DOSAGE FORM, BID (1 TAB)
     Route: 048
     Dates: start: 20211224
  4. Godex [Concomitant]
     Indication: Prophylaxis
     Dosage: 1 DOSAGE FORM, BID (1 CAP)
     Route: 048
     Dates: start: 20211224
  5. FOLIC ACID [Concomitant]
     Active Substance: FOLIC ACID
     Indication: Chronic myeloid leukaemia
     Dosage: 1 DOSAGE FORM, BID (1 TAB)
     Route: 048
     Dates: start: 20191112
  6. SOLONDO [Concomitant]
     Indication: Chronic myeloid leukaemia
     Dosage: 1 DOSAGE FORM, QD (1 TAB)
     Route: 048
     Dates: start: 20250326

REACTIONS (3)
  - Hemiparesis [Not Recovered/Not Resolved]
  - Asthenia [Not Recovered/Not Resolved]
  - Dysarthria [Not Recovered/Not Resolved]

NARRATIVE: CASE EVENT DATE: 20250910
